FAERS Safety Report 8573530-9 (Version None)
Quarter: 2012Q3

REPORT INFORMATION
  Report Type: 
  Country: None (occurrence: None)
  Receive Date: 20120806
  Receipt Date: 20120727
  Transmission Date: 20120928
  Serious: Yes (Hospitalization, Other)
  Sender: FDA-Public Use
  Company Number: CN-PFIZER INC-2012184663

PATIENT
  Age: 6 Year
  Sex: Male

DRUGS (2)
  1. DEXAMETHASONE SODIUM PHOSPHATE [Suspect]
     Indication: PERITONEAL TUBERCULOSIS
     Dosage: 10 MG/D
     Route: 042
     Dates: start: 20010101
  2. PREDNISONE TAB [Suspect]
     Indication: PERITONEAL TUBERCULOSIS
     Dosage: 20 MG/D
     Route: 048
     Dates: start: 20010101

REACTIONS (3)
  - PANCREATITIS ACUTE [None]
  - PANCREATITIS NECROTISING [None]
  - PANCREATITIS HAEMORRHAGIC [None]
